FAERS Safety Report 6885603-7 (Version None)
Quarter: 2010Q3

REPORT INFORMATION
  Report Type: 
  Country: None (occurrence: None)
  Receive Date: 20100729
  Receipt Date: 20080307
  Transmission Date: 20110219
  Serious: No
  Sender: FDA-Public Use
  Company Number: US-PFIZER INC-2008021687

PATIENT
  Sex: Male
  Weight: 97.7 kg

DRUGS (2)
  1. ACCUPRIL [Suspect]
     Indication: HYPERTENSION
     Route: 048
     Dates: start: 20040101
  2. LOVASTATIN [Concomitant]
     Route: 048

REACTIONS (1)
  - SKIN FISSURES [None]
